FAERS Safety Report 18086730 (Version 6)
Quarter: 2022Q4

REPORT INFORMATION
  Report Type: Spontaneous
  Country: US (occurrence: US)
  Receive Date: 20200729
  Receipt Date: 20221129
  Transmission Date: 20230113
  Serious: Yes (Other)
  Sender: FDA-Public Use
  Company Number: US-PFIZER INC-2020286338

PATIENT
  Age: 55 Year
  Sex: Female

DRUGS (3)
  1. XELJANZ XR [Suspect]
     Active Substance: TOFACITINIB CITRATE
     Indication: Rheumatoid arthritis
     Dosage: 11 MG, 1X/DAY
     Route: 048
     Dates: start: 20200718, end: 2020
  2. XELJANZ XR [Suspect]
     Active Substance: TOFACITINIB CITRATE
     Dosage: 11 MG, 1X/DAY
     Route: 048
     Dates: start: 20200718
  3. XELJANZ XR [Suspect]
     Active Substance: TOFACITINIB CITRATE
     Dosage: 11 MG, 1X/DAY
     Route: 048
     Dates: start: 2021

REACTIONS (25)
  - Nerve compression [Recovering/Resolving]
  - Pain in extremity [Unknown]
  - Neck pain [Unknown]
  - Joint noise [Unknown]
  - Flushing [Unknown]
  - Urticaria [Unknown]
  - Dyspnoea [Unknown]
  - Chest pain [Unknown]
  - Hyperhidrosis [Unknown]
  - Palpitations [Unknown]
  - Pneumonia [Unknown]
  - Drug ineffective [Unknown]
  - Sensitivity to weather change [Unknown]
  - Headache [Unknown]
  - Rhinorrhoea [Unknown]
  - Stomatitis [Recovered/Resolved]
  - Candida infection [Unknown]
  - Food poisoning [Unknown]
  - Depression [Unknown]
  - Condition aggravated [Unknown]
  - Musculoskeletal chest pain [Unknown]
  - Peripheral swelling [Unknown]
  - Joint swelling [Unknown]
  - Arthralgia [Unknown]
  - Illness [Unknown]

NARRATIVE: CASE EVENT DATE: 20200101
